FAERS Safety Report 8045596-6 (Version None)
Quarter: 2012Q1

REPORT INFORMATION
  Report Type: 
  Country: None (occurrence: None)
  Receive Date: 20120113
  Receipt Date: 20120109
  Transmission Date: 20120608
  Serious: Yes (Death)
  Sender: FDA-Public Use
  Company Number: NL-MEDIMMUNE-MEDI-0014436

PATIENT
  Sex: Female
  Weight: 6.74 kg

DRUGS (1)
  1. SYNAGIS [Suspect]
     Indication: PREMATURE BABY
     Route: 030
     Dates: start: 20110901, end: 20111221

REACTIONS (1)
  - DEATH [None]
